FAERS Safety Report 17906927 (Version 4)
Quarter: 2020Q4

REPORT INFORMATION
  Report Type: Spontaneous
  Country: US (occurrence: US)
  Receive Date: 20200617
  Receipt Date: 20201216
  Transmission Date: 20210113
  Serious: Yes (Other)
  Sender: FDA-Public Use
  Company Number: US-PFIZER INC-2020234481

PATIENT
  Age: 61 Year
  Sex: Female

DRUGS (1)
  1. XELJANZ [Suspect]
     Active Substance: TOFACITINIB CITRATE
     Indication: RHEUMATOID ARTHRITIS
     Dosage: 5 MG, 2X/DAY (TWICE A DAY)
     Route: 048
     Dates: start: 201505

REACTIONS (7)
  - Anxiety [Unknown]
  - Memory impairment [Unknown]
  - Product dose omission in error [Unknown]
  - Pain [Unknown]
  - Squamous cell carcinoma of skin [Unknown]
  - Sensitivity to weather change [Unknown]
  - Laziness [Unknown]

NARRATIVE: CASE EVENT DATE: 202008
